FAERS Safety Report 9487257 (Version 1)
Quarter: 2013Q3

REPORT INFORMATION
  Report Type: Spontaneous
  Country: GB (occurrence: GB)
  Receive Date: 20130829
  Receipt Date: 20130829
  Transmission Date: 20140515
  Serious: Yes (Other)
  Sender: FDA-Public Use
  Company Number: GB-BAYER-2013-104971

PATIENT
  Age: 64 Year
  Sex: Male

DRUGS (1)
  1. CANESTEN SOLUTION [Suspect]
     Indication: EAR INFECTION
     Dosage: UNK
     Route: 001
     Dates: start: 201308

REACTIONS (1)
  - Urinary tract infection [None]
